FAERS Safety Report 24326769 (Version 2)
Quarter: 2024Q4

REPORT INFORMATION
  Report Type: Spontaneous
  Country: PL (occurrence: PL)
  Receive Date: 20240917
  Receipt Date: 20241021
  Transmission Date: 20250115
  Serious: Yes (Death, Other)
  Sender: ALEXION PHARMACEUTICALS
  Company Number: None

PATIENT
  Age: 65 Year
  Weight: 59 kg

DRUGS (4)
  1. LYNPARZA [Suspect]
     Active Substance: OLAPARIB
     Indication: Ovarian cancer
     Dosage: 2X300MG
  2. LYNPARZA [Suspect]
     Active Substance: OLAPARIB
     Dosage: 2X300MG
  3. LYNPARZA [Suspect]
     Active Substance: OLAPARIB
     Dosage: 2X300MG
  4. LYNPARZA [Suspect]
     Active Substance: OLAPARIB
     Dosage: 2X300MG

REACTIONS (1)
  - Gastrointestinal obstruction [Fatal]
